FAERS Safety Report 16410815 (Version 1)
Quarter: 2019Q2

REPORT INFORMATION
  Report Type: Spontaneous
  Country: US (occurrence: US)
  Receive Date: 20190610
  Receipt Date: 20190610
  Transmission Date: 20190711
  Serious: No
  Sender: FDA-Public Use
  Company Number: US-NOVAST LABORATORIES, LTD-US-2018NOV000349

PATIENT
  Sex: Female

DRUGS (1)
  1. MONO-LINYAH [Suspect]
     Active Substance: ETHINYL ESTRADIOL\NORGESTIMATE
     Indication: MENSTRUATION IRREGULAR
     Dosage: 1 DF, QD
     Route: 048

REACTIONS (2)
  - Product packaging issue [Unknown]
  - Incorrect dose administered [Unknown]
